FAERS Safety Report 7899765 (Version 4)
Quarter: 2013Q2

REPORT INFORMATION
  Report Type: Report from Study
  Country: US (occurrence: US)
  Receive Date: 20110414
  Receipt Date: 20130624
  Transmission Date: 20140414
  Serious: Yes (Other)
  Sender: FDA-Public Use
  Company Number: US-ELI_LILLY_AND_COMPANY-US201104001088

PATIENT
  Sex: Female
  Weight: 90.7 kg

DRUGS (2)
  1. OLANZAPINE [Suspect]
     Indication: SCHIZOPHRENIA
     Dosage: 10 MG, QD
     Dates: start: 1996
  2. OLANZAPINE [Suspect]
     Dosage: 10 MG, QD
     Dates: start: 20120312

REACTIONS (1)
  - Endometrial cancer [Recovered/Resolved]
